FAERS Safety Report 15228094 (Version 6)
Quarter: 2019Q1

REPORT INFORMATION
  Report Type: Report from Study
  Country: US (occurrence: US)
  Receive Date: 20180801
  Receipt Date: 20190226
  Transmission Date: 20190417
  Serious: Yes (Hospitalization)
  Sender: FDA-Public Use
  Company Number: US-ACTELION-A-NJ2018-174289

PATIENT
  Age: 1 Year
  Sex: Female

DRUGS (28)
  1. SILAPAP [Concomitant]
     Active Substance: ACETAMINOPHEN
     Dosage: UNK
     Dates: start: 20181016
  2. BUMETANIDE. [Concomitant]
     Active Substance: BUMETANIDE
     Dosage: 1 MG, TID
     Dates: start: 20181011
  3. ALBUTEROL. [Concomitant]
     Active Substance: ALBUTEROL
     Dosage: 0.083 %, UNK
     Dates: start: 20181011
  4. ALBUTEROL. [Concomitant]
     Active Substance: ALBUTEROL
     Dosage: 2.5 MG, QID
  5. LACTOBACILLUS [Concomitant]
     Active Substance: LACTOBACILLUS ACIDOPHILUS
     Dosage: UNK, BID
  6. COLISTIMETHATE [Concomitant]
     Active Substance: COLISTIMETHATE SODIUM
     Dosage: 150 MG, UNK
     Dates: start: 20181211
  7. ACETIC ACID. [Concomitant]
     Active Substance: ACETIC ACID
     Dosage: 0.25 %, UNK
     Dates: start: 20181019
  8. SYMBICORT [Concomitant]
     Active Substance: BUDESONIDE\FORMOTEROL FUMARATE DIHYDRATE
     Dosage: 80-4.5
     Dates: start: 20181115
  9. OMEPRAZOLE. [Concomitant]
     Active Substance: OMEPRAZOLE
     Dosage: 9 MG, BID
  10. SILDENAFIL. [Concomitant]
     Active Substance: SILDENAFIL
     Dosage: 20 MG, UNK
  11. AZITHROMYCIN ANHYDROUS. [Concomitant]
     Active Substance: AZITHROMYCIN ANHYDROUS
     Dosage: 200/5ML
     Dates: start: 20181211
  12. SODIUM CHLORIDE. [Concomitant]
     Active Substance: SODIUM CHLORIDE
     Dosage: 3 %, UNK
     Dates: start: 20181015
  13. SULFATRIM [Concomitant]
     Active Substance: SULFAMETHOXAZOLE\TRIMETHOPRIM
     Dosage: UNK
     Dates: start: 20181105
  14. SYMBICORT [Concomitant]
     Active Substance: BUDESONIDE\FORMOTEROL FUMARATE DIHYDRATE
     Dosage: UNK
     Dates: start: 20181105
  15. ALDACTONE [Concomitant]
     Active Substance: SPIRONOLACTONE
     Dosage: 9 MG, BID
  16. SODIUM CHLORIDE. [Concomitant]
     Active Substance: SODIUM CHLORIDE
     Dosage: 4 ML, QID
     Route: 055
  17. LEVOTHYROXIN [Concomitant]
     Active Substance: LEVOTHYROXINE
     Dosage: 37.5 MCG, QD
  18. POLY-VI-SOL WITH IRON [Concomitant]
     Active Substance: IRON\VITAMINS
     Dosage: UNK
     Dates: start: 20181015
  19. BOSENTAN TABLET 32 MG PED US [Suspect]
     Active Substance: BOSENTAN
     Dosage: 32 MG, UNK
     Route: 048
  20. LEVOTHYROXIN [Concomitant]
     Active Substance: LEVOTHYROXINE
     Dosage: 75 MCG, UNK
     Dates: start: 20181023
  21. CALCIUM CARBONATE. [Concomitant]
     Active Substance: CALCIUM CARBONATE
     Dosage: 250 MG, QID
     Dates: start: 20181022
  22. BOSENTAN TABLET 32 MG PED US [Suspect]
     Active Substance: BOSENTAN
     Indication: PULMONARY ARTERIAL HYPERTENSION
     Dosage: 16 MG, BID
     Route: 049
     Dates: start: 20170910
  23. REVATIO [Concomitant]
     Active Substance: SILDENAFIL CITRATE
     Dosage: 19 MG, BID
  24. AZITHROMYCIN ANHYDROUS. [Concomitant]
     Active Substance: AZITHROMYCIN ANHYDROUS
     Dosage: 80 MG, M-W-F
     Dates: start: 20181024
  25. PULMICORT TURBUHALER [Concomitant]
     Active Substance: BUDESONIDE
     Dosage: 0.5 MG, BID
     Route: 055
     Dates: start: 20181019
  26. CALCIUM CARBONATE. [Concomitant]
     Active Substance: CALCIUM CARBONATE
     Dosage: 1250/5 ML
  27. TOBRAMYCIN. [Concomitant]
     Active Substance: TOBRAMYCIN
     Dosage: 40 MG, BID
  28. LOSARTAN. [Concomitant]
     Active Substance: LOSARTAN
     Dosage: 5 MG, QD

REACTIONS (7)
  - Dyspnoea [Recovered/Resolved]
  - Rhinotracheitis [Recovered/Resolved]
  - Cardiac operation [Unknown]
  - Unevaluable event [Unknown]
  - Pulmonary hypertension [Unknown]
  - Product dose omission [Unknown]
  - Pyrexia [Recovered/Resolved]

NARRATIVE: CASE EVENT DATE: 2018
